FAERS Safety Report 21057742 (Version 1)
Quarter: 2022Q3

REPORT INFORMATION
  Report Type: Report from Study
  Country: IR (occurrence: IR)
  Receive Date: 20220708
  Receipt Date: 20220708
  Transmission Date: 20221027
  Serious: Yes (Other)
  Sender: FDA-Public Use
  Company Number: IR-Accord-264253

PATIENT
  Age: 67 Year
  Sex: Female

DRUGS (3)
  1. FLUOROURACIL [Suspect]
     Active Substance: FLUOROURACIL
     Indication: Colon cancer
     Dosage: 400 MG/M2 BOLUS, THEN 600 MG/M2 OVER 22 H ON DAYS 1 AND 2, REPEATED EVERY TWO WEEKS
  2. OXALIPLATIN [Concomitant]
     Active Substance: OXALIPLATIN
     Indication: Colon cancer
     Dosage: 180 MG/M2 ON DAY 1
  3. LEUCOVORIN [Concomitant]
     Active Substance: LEUCOVORIN
     Indication: Colon cancer
     Dosage: 400 MG/M2 OVER 2 H ON DAYS?1 AND 2

REACTIONS (1)
  - Sinus tachycardia [Unknown]
